FAERS Safety Report 18833878 (Version 6)
Quarter: 2021Q2

REPORT INFORMATION
  Report Type: Report from Study
  Country: FR (occurrence: FR)
  Receive Date: 20210203
  Receipt Date: 20210512
  Transmission Date: 20210717
  Serious: Yes (Hospitalization)
  Sender: FDA-Public Use
  Company Number: FR-EISAI MEDICAL RESEARCH-EC-2021-087368

PATIENT
  Age: 77 Year
  Sex: Female
  Weight: 45 kg

DRUGS (13)
  1. PEMBROLIZUMAB. [Suspect]
     Active Substance: PEMBROLIZUMAB
     Route: 041
     Dates: start: 20210114, end: 20210114
  2. ACETAMINOPHEN. [Concomitant]
     Active Substance: ACETAMINOPHEN
     Dates: start: 20201203
  3. CERNEVIT [Concomitant]
     Active Substance: VITAMINS
     Dates: start: 20201203
  4. SMOFKABIVEN [Concomitant]
     Active Substance: AMINO ACIDS\DEXTROSE\ELECTROLYTES NOS\SOYBEAN OIL
     Dates: start: 20201203
  5. COMPOSITION UNSPECIFIED [Concomitant]
     Dates: start: 202012
  6. PEMBROLIZUMAB. [Suspect]
     Active Substance: PEMBROLIZUMAB
     Indication: GASTRIC CANCER
     Route: 041
     Dates: start: 20201203, end: 20201222
  7. LENVATINIB [Suspect]
     Active Substance: LENVATINIB
     Indication: GASTRIC CANCER
     Route: 048
     Dates: start: 20201203, end: 20210127
  8. SODIUM CARBONATE [Concomitant]
     Active Substance: SODIUM CARBONATE
     Dates: start: 20201203
  9. RACECADOTRIL [Concomitant]
     Active Substance: RACECADOTRIL
     Dates: start: 20201203
  10. PHLOROGLUCINOL [Concomitant]
     Active Substance: PHLOROGLUCINOL
     Dates: start: 20201214
  11. LA ROCHE POSAY LIPIKAR BAUME AP PLUS [Concomitant]
     Dates: start: 20201222
  12. CANDESARTAN. [Concomitant]
     Active Substance: CANDESARTAN
     Dates: start: 20210105
  13. METOCLOPRAMIDE. [Concomitant]
     Active Substance: METOCLOPRAMIDE
     Dates: start: 20201203

REACTIONS (1)
  - Thrombotic microangiopathy [Recovered/Resolved]

NARRATIVE: CASE EVENT DATE: 20210128
